FAERS Safety Report 7875916-4 (Version None)
Quarter: 2011Q4

REPORT INFORMATION
  Report Type: 
  Country: None (occurrence: None)
  Receive Date: 20111031
  Receipt Date: 20111020
  Transmission Date: 20120403
  Serious: Yes (Other)
  Sender: FDA-Public Use
  Company Number: BR-ASTRAZENECA-2011SE64124

PATIENT
  Age: 54 Year
  Sex: Female
  Weight: 161 kg

DRUGS (9)
  1. HYDROCHLOROTHIAZIDE [Concomitant]
     Route: 048
  2. EZETIMIBE [Concomitant]
     Route: 048
  3. AMLODIPINE [Concomitant]
     Route: 048
  4. ENALAPRIL [Concomitant]
     Route: 048
  5. METFORMIN HCL [Suspect]
     Route: 048
  6. ASPIRIN [Concomitant]
     Route: 048
  7. ROSUVASTATIN [Suspect]
     Route: 048
  8. GALVUS-MET [Suspect]
     Dosage: 50/850 TWICE A DAY
     Route: 048
  9. NPH INSULIN [Suspect]
     Dosage: 38+22+0+26
     Route: 058

REACTIONS (6)
  - CORONARY ARTERY DISEASE [None]
  - BLOOD GLUCOSE ABNORMAL [None]
  - ANGINA UNSTABLE [None]
  - HYPOGLYCAEMIA [None]
  - DIABETIC RETINOPATHY [None]
  - ALBUMINURIA [None]
